FAERS Safety Report 15949949 (Version 1)
Quarter: 2019Q1

REPORT INFORMATION
  Report Type: Spontaneous
  Country: US (occurrence: US)
  Receive Date: 20190212
  Receipt Date: 20190212
  Transmission Date: 20190417
  Serious: No
  Sender: FDA-Public Use
  Company Number: US-BAYER-2019-026539

PATIENT
  Age: 63 Year
  Sex: Male
  Weight: 100.69 kg

DRUGS (3)
  1. MUCINEX DM [Suspect]
     Active Substance: DEXTROMETHORPHAN HYDROBROMIDE\GUAIFENESIN
     Dosage: UNK UNK, QD
     Dates: start: 20111118
  2. LORATADINE. [Suspect]
     Active Substance: LORATADINE
     Dosage: UNK UNK, QD
     Dates: start: 20111118
  3. AZELASTINE HCL [Suspect]
     Active Substance: AZELASTINE HYDROCHLORIDE
     Dosage: 548 ?G, BID  (2 SPRAYS PER NOSTRIL TWICE DAILY)
     Route: 045
     Dates: start: 20111118

REACTIONS (2)
  - Diarrhoea [Not Recovered/Not Resolved]
  - Pain [Not Recovered/Not Resolved]

NARRATIVE: CASE EVENT DATE: 20111122
